FAERS Safety Report 6228663-9 (Version None)
Quarter: 2009Q2

REPORT INFORMATION
  Report Type: 
  Country: None (occurrence: None)
  Receive Date: 20090614
  Receipt Date: 20090604
  Transmission Date: 20091009
  Serious: Yes (Hospitalization, Other)
  Sender: FDA-Public Use
  Company Number: PHHY2009JP13606

PATIENT
  Sex: Female
  Weight: 73 kg

DRUGS (16)
  1. GLEEVEC [Suspect]
     Indication: CHRONIC MYELOID LEUKAEMIA
     Dosage: 400 MG/DAY
     Route: 048
     Dates: start: 20080213, end: 20080311
  2. GLEEVEC [Suspect]
     Dosage: 200 MG/DAY
     Route: 048
     Dates: start: 20080604, end: 20081104
  3. GLEEVEC [Suspect]
     Dosage: 300 MG/DAY
     Route: 048
     Dates: start: 20081105, end: 20090112
  4. GLEEVEC [Suspect]
     Dosage: 200 MG/DAY
     Route: 048
     Dates: start: 20090127, end: 20090217
  5. GLEEVEC [Suspect]
     Dosage: 100 MG/DAY
     Route: 048
     Dates: start: 20090218, end: 20090316
  6. GEFITINIB [Suspect]
     Indication: CHRONIC MYELOID LEUKAEMIA
     Dosage: 250 MG, UNK
     Route: 048
     Dates: start: 20080429, end: 20081223
  7. ADALAT CC [Concomitant]
     Indication: HYPERTENSION
     Dosage: 40 MG, UNK
     Route: 048
     Dates: start: 20080205, end: 20080312
  8. TAKEPRON [Concomitant]
     Indication: OESOPHAGITIS
     Dosage: 15 MG, UNK
     Route: 048
     Dates: start: 20080218
  9. DOXORUBICIN HYDROCHLORIDE [Concomitant]
     Dosage: 30 MG, UNK
     Route: 042
     Dates: start: 20080317
  10. DOXORUBICIN HYDROCHLORIDE [Concomitant]
     Dosage: 30 MG, UNK
     Route: 042
     Dates: start: 20080324, end: 20080324
  11. CISPLATIN [Concomitant]
     Dosage: 250 MG, UNK
     Route: 048
     Dates: start: 20080429
  12. CISPLATIN [Concomitant]
     Dosage: 25 MG, UNK
     Route: 042
     Dates: start: 20080331
  13. ADRIAMYCIN RDF [Concomitant]
     Dosage: 30 MG, UNK
     Dates: start: 20080317
  14. ADRIAMYCIN RDF [Concomitant]
     Dosage: 30 MG, UNK
     Dates: start: 20080324
  15. CARBOPLATIN [Concomitant]
  16. GEMCITABINE HCL [Concomitant]

REACTIONS (17)
  - ALANINE AMINOTRANSFERASE INCREASED [None]
  - ARTHRALGIA [None]
  - ASPARTATE AMINOTRANSFERASE INCREASED [None]
  - BLOOD ALKALINE PHOSPHATASE INCREASED [None]
  - BLOOD LACTATE DEHYDROGENASE INCREASED [None]
  - BLOOD POTASSIUM DECREASED [None]
  - BLOOD SODIUM DECREASED [None]
  - DRUG INTOLERANCE [None]
  - DYSPNOEA [None]
  - GAMMA-GLUTAMYLTRANSFERASE INCREASED [None]
  - MALIGNANT NEOPLASM PROGRESSION [None]
  - NAUSEA [None]
  - PERFORMANCE STATUS DECREASED [None]
  - PLEURAL EFFUSION [None]
  - PLEURODESIS [None]
  - STAPHYLOCOCCAL INFECTION [None]
  - VOMITING [None]
